FAERS Safety Report 22067627 (Version 2)
Quarter: 2023Q1

REPORT INFORMATION
  Report Type: Spontaneous
  Country: US (occurrence: US)
  Receive Date: 20230307
  Receipt Date: 20230320
  Transmission Date: 20230418
  Serious: No
  Sender: FDA-Public Use
  Company Number: US-TEVA-2023-US-2861185

PATIENT
  Age: 65 Year
  Sex: Female

DRUGS (3)
  1. CLONAZEPAM [Suspect]
     Active Substance: CLONAZEPAM
     Indication: Burning mouth syndrome
     Dosage: 4 MILLIGRAM DAILY; 1 MG
     Route: 065
     Dates: start: 20230220
  2. CLONAZEPAM [Suspect]
     Active Substance: CLONAZEPAM
     Indication: Facial pain
  3. CLONAZEPAM [Suspect]
     Active Substance: CLONAZEPAM
     Indication: Nerve injury

REACTIONS (5)
  - Drug effect less than expected [Unknown]
  - Product use in unapproved indication [Unknown]
  - Product substitution issue [Unknown]
  - Adverse event [Unknown]
  - Drug ineffective [Unknown]
